FAERS Safety Report 9524048 (Version 1)
Quarter: 2013Q1

REPORT INFORMATION
  Report Type: Spontaneous
  Country: US (occurrence: None)
  Receive Date: 20130313
  Receipt Date: 20130313
  Transmission Date: 20140127
  Serious: No
  Sender: FDA-Public Use
  Company Number: 1000040874

PATIENT
  Sex: Female

DRUGS (10)
  1. SAVELLA [Suspect]
     Indication: FIBROMYALGIA
  2. ROBINUL [Suspect]
     Indication: HYPERHIDROSIS
     Dosage: 4 MG (1 MG, 4 IN 1 D)
  3. BENADRYL (DIPHENHYDRAMINE) (DIPHENHYDRAMINE) [Concomitant]
  4. FENTANYL (FENTANYL) (FENTANYL) [Concomitant]
  5. ASPIRIN (ACETYLSALICYLIC ACID) (ACETYLSALICYLIC ACID) [Concomitant]
  6. LEXAPRO (ESCITALOPRAM OXALATE) (ESCITALOPRAM OXALATE) [Concomitant]
  7. XANAX (ALPRAZOLAM) (ALPRAZOLAM) [Concomitant]
  8. PILOCARPINE (PILOCARPINE) (PILOCARPINE) [Concomitant]
  9. RESTASIS 9CICLOSPORIN) (CICLOSPORIN) [Concomitant]
  10. PREDNISONE (PREDNISONE) (PREDNISONE) [Concomitant]

REACTIONS (2)
  - Hyperhidrosis [None]
  - Dry mouth [None]
